FAERS Safety Report 4569453-2 (Version None)
Quarter: 2005Q1

REPORT INFORMATION
  Report Type: 
  Country: None (occurrence: None)
  Receive Date: 20050118
  Receipt Date: 20040107
  Transmission Date: 20050727
  Serious: Yes (Other)
  Sender: FDA-Public Use
  Company Number: HQWYE487720JAN04

PATIENT
  Age: 54 Year
  Sex: Female
  Weight: 58.11 kg

DRUGS (5)
  1. PREMPRO [Suspect]
     Indication: MENOPAUSE
     Dosage: 0.625MG/2.5MG, ORAL
     Route: 048
  2. BIAXIN [Suspect]
     Dosage: 500MG, ORAL; TWO TABLETS DAILY FOR 7 DAYS, ORAL
     Route: 048
     Dates: start: 20031211, end: 20031217
  3. BIAXIN [Suspect]
     Dosage: 500MG, ORAL; TWO TABLETS DAILY FOR 7 DAYS, ORAL
     Route: 048
     Dates: start: 20031227, end: 20040103
  4. LEVOXYL [Concomitant]
  5. ALLEGRA [Concomitant]

REACTIONS (2)
  - DRUG INTERACTION [None]
  - METRORRHAGIA [None]
